FAERS Safety Report 7338350-1 (Version None)
Quarter: 2011Q1

REPORT INFORMATION
  Report Type: 
  Country: None (occurrence: None)
  Receive Date: 20110308
  Receipt Date: 20110221
  Transmission Date: 20110831
  Serious: Yes (Disabling, Other)
  Sender: FDA-Public Use
  Company Number: GB-GENENTECH-286856

PATIENT
  Sex: Male

DRUGS (9)
  1. LUCENTIS [Suspect]
     Dosage: 0.5 MG, UNK
     Dates: start: 20090306
  2. WARFARIN [Concomitant]
     Indication: PRODUCT USED FOR UNKNOWN INDICATION
  3. CANDESARTAN [Concomitant]
     Indication: PRODUCT USED FOR UNKNOWN INDICATION
  4. LUCENTIS [Suspect]
     Indication: MACULAR DEGENERATION
     Dosage: 0.5 MG, UNK
     Route: 031
     Dates: start: 20090130
  5. LUCENTIS [Suspect]
     Dosage: 0.5 MG, UNK
     Dates: start: 20090403
  6. FELODIPINE [Concomitant]
     Indication: PRODUCT USED FOR UNKNOWN INDICATION
  7. TRAVATAN [Concomitant]
     Indication: PRODUCT USED FOR UNKNOWN INDICATION
  8. QUININE [Concomitant]
     Indication: PRODUCT USED FOR UNKNOWN INDICATION
  9. FERROUS SULFATE TAB [Concomitant]
     Indication: PRODUCT USED FOR UNKNOWN INDICATION

REACTIONS (8)
  - SKIN HAEMORRHAGE [None]
  - PSORIASIS [None]
  - PAIN [None]
  - STAPHYLOCOCCAL INFECTION [None]
  - COLD SWEAT [None]
  - SKIN ULCER [None]
  - OEDEMA PERIPHERAL [None]
  - PRURITUS [None]
